FAERS Safety Report 9496649 (Version 2)
Quarter: 2013Q4

REPORT INFORMATION
  Report Type: Spontaneous
  Country: DE (occurrence: None)
  Receive Date: 20130828
  Receipt Date: 20131010
  Transmission Date: 20140711
  Serious: Yes (Hospitalization)
  Sender: FDA-Public Use
  Company Number: DE-20130155

PATIENT
  Age: 66 Year
  Sex: Female

DRUGS (1)
  1. DOTAREM [Suspect]
     Indication: NUCLEAR MAGNETIC RESONANCE IMAGING ABDOMINAL
     Dosage: 12 ML (12 ML, 1 IN 1 D), INTRAVENOUS (NOT OTHERWISE SPECIFIED)?
     Route: 042
     Dates: start: 20130604, end: 20130604

REACTIONS (7)
  - Blood pressure systolic decreased [None]
  - Asthenia [None]
  - Dizziness [None]
  - Paraesthesia [None]
  - Tremor [None]
  - Urticaria [None]
  - Tachycardia [None]
